FAERS Safety Report 6829850-9 (Version None)
Quarter: 2010Q3

REPORT INFORMATION
  Report Type: 
  Country: None (occurrence: None)
  Receive Date: 20100710
  Receipt Date: 20100628
  Transmission Date: 20110219
  Serious: Yes (Hospitalization, Other)
  Sender: FDA-Public Use
  Company Number: US-ELI_LILLY_AND_COMPANY-US201003006482

PATIENT
  Sex: Female

DRUGS (5)
  1. FORTEO [Suspect]
     Indication: OSTEOPOROSIS
     Dosage: UNK, UNK
  2. ANTIHYPERTENSIVES [Concomitant]
  3. CALCIUM W/VITAMIN D NOS [Concomitant]
  4. VITAMINS [Concomitant]
  5. FISH OIL [Concomitant]

REACTIONS (3)
  - CHEST PAIN [None]
  - PAIN [None]
  - PULMONARY EMBOLISM [None]
